FAERS Safety Report 6256959-3 (Version None)
Quarter: 2009Q3

REPORT INFORMATION
  Report Type: 
  Country: None (occurrence: None)
  Receive Date: 20090701
  Receipt Date: 20090701
  Transmission Date: 20100115
  Serious: Yes (Hospitalization)
  Sender: FDA-Public Use
  Company Number: None

PATIENT
  Sex: Female
  Weight: 111 kg

DRUGS (3)
  1. CYCLOPHOSPHAMIDE [Suspect]
     Dosage: 1200 MG
     Dates: end: 20080509
  2. DOXORUBICIN HCL [Suspect]
     Dosage: 120 MG
     Dates: end: 20080509
  3. TAXOL [Suspect]
     Dosage: 175 MG
     Dates: end: 20080808

REACTIONS (1)
  - EJECTION FRACTION DECREASED [None]
